FAERS Safety Report 7595686-7 (Version None)
Quarter: 2011Q3

REPORT INFORMATION
  Report Type: 
  Country: None (occurrence: None)
  Receive Date: 20110707
  Receipt Date: 20110629
  Transmission Date: 20111222
  Serious: Yes (Other)
  Sender: FDA-Public Use
  Company Number: US-ELI_LILLY_AND_COMPANY-US200910005420

PATIENT
  Sex: Male
  Weight: 88.435 kg

DRUGS (5)
  1. BYETTA [Suspect]
     Dosage: UNK, UNKNOWN
     Route: 065
     Dates: start: 20061027, end: 20070724
  2. FUROSEMIDE [Concomitant]
     Indication: FLUID RETENTION
  3. LANTUS [Concomitant]
     Indication: DIABETES MELLITUS
  4. LASIX                                   /USA/ [Concomitant]
  5. FERROUS SULFATE TAB [Concomitant]

REACTIONS (3)
  - RENAL FAILURE CHRONIC [None]
  - ASTHENIA [None]
  - WEIGHT DECREASED [None]
